FAERS Safety Report 8335048-8 (Version None)
Quarter: 2012Q1

REPORT INFORMATION
  Report Type: 
  Country: None (occurrence: None)
  Receive Date: 20120329
  Receipt Date: 20090423
  Transmission Date: 20120608
  Serious: Yes (Other)
  Sender: FDA-Public Use
  Company Number: PHEH2009US04105

PATIENT

DRUGS (2)
  1. BETA BLOCKING AGENTS (NO INGREDIENTS/SUBSTANCES) [Suspect]
  2. EXELON [Suspect]

REACTIONS (1)
  - BRADYCARDIA [None]
